FAERS Safety Report 25172816 (Version 1)
Quarter: 2025Q2

REPORT INFORMATION
  Report Type: Spontaneous
  Country: US (occurrence: US)
  Receive Date: 20250408
  Receipt Date: 20250408
  Transmission Date: 20250716
  Serious: No
  Sender: GRIFOLS
  Company Number: US-IGSA-BIG0033905

PATIENT
  Age: 45 Year
  Sex: Female
  Weight: 95.692 kg

DRUGS (18)
  1. GAMMAKED [Suspect]
     Active Substance: HUMAN IMMUNOGLOBULIN G
     Indication: Dermatomyositis
     Dosage: 50 GRAM, Q.WK.
  2. GAMMAKED [Suspect]
     Active Substance: HUMAN IMMUNOGLOBULIN G
     Indication: Myopathy
     Dosage: 50 GRAM, Q.WK.
     Route: 042
  3. GAMMAKED [Suspect]
     Active Substance: HUMAN IMMUNOGLOBULIN G
     Indication: Off label use
     Route: 042
     Dates: start: 20250308, end: 20250308
  4. GAMMAKED [Suspect]
     Active Substance: HUMAN IMMUNOGLOBULIN G
     Route: 042
     Dates: start: 20250315, end: 20250315
  5. LAMOTRIGINE [Concomitant]
     Active Substance: LAMOTRIGINE
  6. PREDNISONE [Concomitant]
     Active Substance: PREDNISONE
  7. METHOTREXATE [Concomitant]
     Active Substance: METHOTREXATE
  8. ERGOCALCIFEROL [Concomitant]
     Active Substance: ERGOCALCIFEROL
  9. FERROUS SULFATE [Concomitant]
     Active Substance: FERROUS SULFATE
  10. VITAMINS [Concomitant]
     Active Substance: VITAMINS
  11. FOLIC ACID [Concomitant]
     Active Substance: FOLIC ACID
  12. FLONASE [Concomitant]
     Active Substance: FLUTICASONE PROPIONATE
  13. ASPIRIN\CAFFEINE\SALICYLAMIDE [Concomitant]
     Active Substance: ASPIRIN\CAFFEINE\SALICYLAMIDE
  14. CALCITRIOL [Concomitant]
     Active Substance: CALCITRIOL
  15. SIROLIMUS [Concomitant]
     Active Substance: SIROLIMUS
  16. OMEPRAZOLE [Concomitant]
     Active Substance: OMEPRAZOLE
  17. ACETAMINOPHEN [Concomitant]
     Active Substance: ACETAMINOPHEN
     Indication: Premedication
  18. DIPHENHYDRAMINE [Concomitant]
     Active Substance: DIPHENHYDRAMINE
     Indication: Premedication

REACTIONS (4)
  - Pruritus [Recovered/Resolved]
  - Urticaria [Recovered/Resolved]
  - Rash [Recovered/Resolved]
  - Nausea [Recovered/Resolved]

NARRATIVE: CASE EVENT DATE: 20250308
